FAERS Safety Report 19159427 (Version 2)
Quarter: 2021Q2

REPORT INFORMATION
  Report Type: Report from Study
  Country: MX (occurrence: MX)
  Receive Date: 20210420
  Receipt Date: 20210422
  Transmission Date: 20210717
  Serious: Yes (Death, Hospitalization)
  Sender: FDA-Public Use
  Company Number: MX-UNITED THERAPEUTICS-UNT-2021-007014

PATIENT
  Age: 49 Year
  Sex: Female
  Weight: 101.5 kg

DRUGS (8)
  1. METHOTREXATE. [Concomitant]
     Active Substance: METHOTREXATE
     Indication: SCLERODERMA
     Dosage: 7.5 MG, TOTAL DAILY DOSE
     Route: 065
     Dates: start: 20171115, end: 20210415
  2. SILDENAFIL. [Concomitant]
     Active Substance: SILDENAFIL
     Indication: PULMONARY ARTERIAL HYPERTENSION
     Dosage: 75 MG, TOTAL DAILY DOSE
     Route: 065
     Dates: start: 20180723, end: 20210415
  3. FOLIC ACID. [Concomitant]
     Active Substance: FOLIC ACID
     Indication: SCLERODERMA
     Dosage: 2.5 MG, TOTAL DAILY DOSE
     Route: 065
     Dates: start: 20171115, end: 20210415
  4. DILTIAZEM. [Concomitant]
     Active Substance: DILTIAZEM
     Indication: PULMONARY ARTERIAL HYPERTENSION
     Dosage: 120 MG, TOTAL DAILY DOSE
     Route: 065
     Dates: start: 20180724, end: 20210415
  5. UT?15C SR [Suspect]
     Active Substance: TREPROSTINIL DIOLAMINE
     Dosage: UNK
     Route: 048
     Dates: start: 20171017
  6. UT?15C SR [Suspect]
     Active Substance: TREPROSTINIL DIOLAMINE
     Indication: PULMONARY ARTERIAL HYPERTENSION
     Dosage: 5 MG, TID
     Route: 048
     Dates: start: 20171020, end: 20210415
  7. SPIRONOLACTONE. [Concomitant]
     Active Substance: SPIRONOLACTONE
     Indication: PULMONARY ARTERIAL HYPERTENSION
     Dosage: 5 MG, TOTAL DAILY DOSE
     Route: 065
     Dates: start: 20170413, end: 20210415
  8. NOVOTIRAL [Concomitant]
     Active Substance: LEVOTHYROXINE
     Indication: HYPOTHYROIDISM
     Dosage: 20/100 MCG, TOTAL DAILY DOSE
     Route: 065
     Dates: start: 19890101, end: 20210415

REACTIONS (1)
  - COVID-19 [Fatal]

NARRATIVE: CASE EVENT DATE: 20210413
